FAERS Safety Report 10244555 (Version 2)
Quarter: 2014Q3

REPORT INFORMATION
  Report Type: Spontaneous
  Country: US (occurrence: None)
  Receive Date: 20140617
  Receipt Date: 20140917
  Transmission Date: 20150326
  Serious: No
  Sender: FDA-Public Use
  Company Number: 2013CT000122

PATIENT
  Age: 51 Year
  Sex: Male
  Weight: 96.62 kg

DRUGS (1)
  1. KORLYM [Suspect]
     Active Substance: MIFEPRISTONE
     Indication: PITUITARY-DEPENDENT CUSHING^S SYNDROME
     Route: 048
     Dates: start: 201311, end: 201407

REACTIONS (3)
  - Gynaecomastia [None]
  - Blood pressure increased [None]
  - Oedema peripheral [None]

NARRATIVE: CASE EVENT DATE: 201312
